FAERS Safety Report 7684764-X (Version None)
Quarter: 2011Q3

REPORT INFORMATION
  Report Type: 
  Country: None (occurrence: None)
  Receive Date: 20110810
  Receipt Date: 20110729
  Transmission Date: 20111222
  Serious: Yes (Hospitalization, Other)
  Sender: FDA-Public Use
  Company Number: US-2011-10376

PATIENT
  Age: 60 Year
  Sex: Female

DRUGS (4)
  1. BUSULFAN [Suspect]
     Indication: STEM CELL TRANSPLANT
     Dosage: 46 MG, DAILY DOSE, INTRAVENOUS 194 MG MILLIGRAM(S), DAILY DOSE, INTRAVENOUS
     Route: 042
     Dates: start: 20110505, end: 20110508
  2. BUSULFAN [Suspect]
     Indication: STEM CELL TRANSPLANT
     Dosage: 46 MG, DAILY DOSE, INTRAVENOUS 194 MG MILLIGRAM(S), DAILY DOSE, INTRAVENOUS
     Route: 042
     Dates: start: 20110502, end: 20110502
  3. ETOPOSIDE [Concomitant]
  4. CYCLOPHOSPHAMIDE [Concomitant]

REACTIONS (13)
  - FATIGUE [None]
  - PAIN OF SKIN [None]
  - DIARRHOEA [None]
  - ACUTE GRAFT VERSUS HOST DISEASE [None]
  - OEDEMA [None]
  - SKIN EXFOLIATION [None]
  - HYPOTENSION [None]
  - DEHYDRATION [None]
  - PAIN IN EXTREMITY [None]
  - HYPOPHAGIA [None]
  - VIRAL INFECTION [None]
  - NAUSEA [None]
  - VOMITING [None]
